FAERS Safety Report 20916868 (Version 2)
Quarter: 2022Q3

REPORT INFORMATION
  Report Type: Spontaneous
  Country: AU (occurrence: AU)
  Receive Date: 20220605
  Receipt Date: 20220706
  Transmission Date: 20221026
  Serious: Yes (Life-Threatening, Hospitalization, Other)
  Sender: FDA-Public Use
  Company Number: AU-MLMSERVICE-20220505-3540470-1

PATIENT
  Age: 3 Decade
  Sex: Male

DRUGS (5)
  1. IFOSFAMIDE [Suspect]
     Active Substance: IFOSFAMIDE
     Indication: Osteosarcoma metastatic
     Dosage: 1800 MG/M2, QD, PALLIATIVE CHEMOTHERAPY, DAY 1-5, ON A 3 WEEKLY, CYCLE
     Route: 065
  2. IFOSFAMIDE [Suspect]
     Active Substance: IFOSFAMIDE
     Indication: Metastases to gastrointestinal tract
  3. IFOSFAMIDE [Suspect]
     Active Substance: IFOSFAMIDE
     Indication: Metastases to lymph nodes
  4. ETOPOSIDE [Suspect]
     Active Substance: ETOPOSIDE
     Indication: Metastases to gastrointestinal tract
     Dosage: 100 MG/M2, QD, PALLIATIVE CHEMOTHERAPY, DAY 1-5, ON A 3 WEEKLY CYCLE
     Route: 065
  5. ETOPOSIDE [Suspect]
     Active Substance: ETOPOSIDE
     Indication: Osteosarcoma metastatic

REACTIONS (12)
  - Tumour necrosis [Recovered/Resolved]
  - Weight decreased [Recovered/Resolved]
  - Anaemia [Recovered/Resolved]
  - Large intestine perforation [Recovered/Resolved]
  - Tumour rupture [Recovered/Resolved]
  - Neutropenic sepsis [Recovered/Resolved]
  - Abscess intestinal [Recovered/Resolved]
  - Escherichia infection [Recovered/Resolved]
  - Hypotension [Recovered/Resolved]
  - Febrile neutropenia [Recovered/Resolved]
  - Bacteroides infection [Recovered/Resolved]
  - Physical deconditioning [Unknown]
